FAERS Safety Report 10750860 (Version 2)
Quarter: 2015Q1

REPORT INFORMATION
  Report Type: Spontaneous
  Country: US (occurrence: None)
  Receive Date: 20150128
  Receipt Date: 20150223
  Transmission Date: 20150721
  Serious: Yes (Hospitalization, Other)
  Sender: FDA-Public Use
  Company Number: HYP201501-000003

PATIENT
  Age: 20 Year
  Sex: Male
  Weight: 62 kg

DRUGS (3)
  1. RAVICTI [Suspect]
     Active Substance: GLYCEROL PHENYLBUTYRATE
     Indication: UREA CYCLE ENZYME DEFICIENCY
     Dates: start: 201412, end: 20150111
  2. TRIAMCINOLONE (TRIAMCINOLONE) [Concomitant]
     Active Substance: TRIAMCINOLONE
  3. ARGININE (ARGININE) [Concomitant]

REACTIONS (7)
  - Catabolic state [None]
  - Diarrhoea [None]
  - Decreased appetite [None]
  - Blood glucose increased [None]
  - Acute respiratory failure [None]
  - Hyperammonaemic crisis [None]
  - Brain oedema [None]

NARRATIVE: CASE EVENT DATE: 20150107
